FAERS Safety Report 16274123 (Version 1)
Quarter: 2019Q2

REPORT INFORMATION
  Report Type: Report from Study
  Country: US (occurrence: US)
  Receive Date: 20190504
  Receipt Date: 20190504
  Transmission Date: 20190711
  Serious: Yes (Other)
  Sender: FDA-Public Use
  Company Number: US-ROCHE-2311935

PATIENT
  Sex: Female

DRUGS (8)
  1. CAPECITABINE. [Concomitant]
     Active Substance: CAPECITABINE
     Route: 048
  2. DOXORUBICIN [Concomitant]
     Active Substance: DOXORUBICIN
  3. GEMCITABINE [Concomitant]
     Active Substance: GEMCITABINE\GEMCITABINE HYDROCHLORIDE
  4. TRASTUZUMAB. [Concomitant]
     Active Substance: TRASTUZUMAB
     Route: 065
  5. LAPATINIB [Concomitant]
     Active Substance: LAPATINIB
  6. TRASTUZUMAB EMTANSINE [Suspect]
     Active Substance: ADO-TRASTUZUMAB EMTANSINE
     Indication: HER-2 POSITIVE BREAST CANCER
     Route: 065
  7. PACLITAXEL. [Concomitant]
     Active Substance: PACLITAXEL
  8. TUCATINIB [Concomitant]
     Active Substance: TUCATINIB

REACTIONS (1)
  - Radiation necrosis [Unknown]
